FAERS Safety Report 18695923 (Version 1)
Quarter: 2021Q1

REPORT INFORMATION
  Report Type: Spontaneous
  Country: GB (occurrence: GB)
  Receive Date: 20210104
  Receipt Date: 20210104
  Transmission Date: 20210419
  Serious: Yes (Hospitalization)
  Sender: FDA-Public Use
  Company Number: GB-MYLANLABS-2020M1105871

PATIENT
  Age: 24 Year
  Sex: Female

DRUGS (2)
  1. ARIPIPRAZOLE. [Suspect]
     Active Substance: ARIPIPRAZOLE
     Indication: BIPOLAR I DISORDER
     Dosage: 5MG,TITRATED UPTO10MG, OFF UNDER PSYCHIATRIST GUIDANCE AFTER 10?12 WK
     Dates: start: 201908, end: 201910
  2. LITHIUM CARBONATE. [Concomitant]
     Active Substance: LITHIUM CARBONATE
     Indication: PRODUCT USED FOR UNKNOWN INDICATION
     Dosage: EVERY NIGHT
     Dates: start: 2014

REACTIONS (10)
  - Depression [Recovering/Resolving]
  - Restless legs syndrome [Recovered/Resolved]
  - Suicidal ideation [Not Recovered/Not Resolved]
  - Increased appetite [Recovered/Resolved]
  - Weight increased [Not Recovered/Not Resolved]
  - Asthenia [Recovered/Resolved]
  - Akathisia [Recovering/Resolving]
  - Restlessness [Unknown]
  - Fatigue [Recovered/Resolved]
  - Social anxiety disorder [Recovered/Resolved]
